FAERS Safety Report 20728540 (Version 1)
Quarter: 2022Q2

REPORT INFORMATION
  Report Type: Spontaneous
  Country: TH (occurrence: TH)
  Receive Date: 20220420
  Receipt Date: 20220420
  Transmission Date: 20220721
  Serious: Yes (Life-Threatening, Hospitalization, Other)
  Sender: FDA-Public Use
  Company Number: TH-LEADINGPHARMA-TH-2022LEALIT00055

PATIENT
  Age: 32 Year
  Sex: Male
  Weight: 49 kg

DRUGS (6)
  1. LIDOCAINE [Suspect]
     Active Substance: LIDOCAINE
     Indication: Liposuction
     Dosage: 2% 60 ML IN 500ML
     Route: 058
  2. LIDOCAINE [Suspect]
     Active Substance: LIDOCAINE
     Dosage: 500 ML OF 0.21% LIDOCAINE
     Route: 058
  3. EPINEPHRINE [Suspect]
     Active Substance: EPINEPHRINE
     Indication: Liposuction
     Dosage: 0.2MG IN 500ML
     Route: 058
  4. EPINEPHRINE [Suspect]
     Active Substance: EPINEPHRINE
     Route: 065
  5. FAT EMULSION NOS [Concomitant]
     Active Substance: EGG PHOSPHOLIPIDS\SAFFLOWER OIL\SOYBEAN OIL
     Indication: Product used for unknown indication
     Dosage: 10 ML/KG OF 20%
     Route: 042
  6. CALCIUM CHLORIDE\POTASSIUM CHLORIDE\SODIUM LACTATE [Concomitant]
     Active Substance: CALCIUM CHLORIDE\POTASSIUM CHLORIDE\SODIUM LACTATE
     Indication: Product used for unknown indication

REACTIONS (2)
  - Local anaesthetic systemic toxicity [Unknown]
  - Overdose [Unknown]
